FAERS Safety Report 7127886-4 (Version None)
Quarter: 2010Q4

REPORT INFORMATION
  Report Type: 
  Country: None (occurrence: None)
  Receive Date: 20101130
  Receipt Date: 20101122
  Transmission Date: 20110411
  Serious: Yes (Death, Hospitalization, Other)
  Sender: FDA-Public Use
  Company Number: US-TEVA-256382USA

PATIENT
  Age: 57 Year
  Sex: Male

DRUGS (4)
  1. DEXAMETHASONE SODIUM PHOSPHATE [Suspect]
  2. OXYCODONE HCL [Concomitant]
  3. FOLIC ACID [Concomitant]
  4. BACTRIM [Concomitant]

REACTIONS (1)
  - STRONGYLOIDIASIS [None]
